FAERS Safety Report 23703659 (Version 2)
Quarter: 2024Q2

REPORT INFORMATION
  Report Type: Spontaneous
  Country: US (occurrence: US)
  Receive Date: 20240403
  Receipt Date: 20240510
  Transmission Date: 20240715
  Serious: Yes (Other)
  Sender: FDA-Public Use
  Company Number: US-PFIZER INC-202400077791

PATIENT
  Age: 64 Year
  Sex: Female

DRUGS (1)
  1. VELSIPITY [Suspect]
     Active Substance: ETRASIMOD ARGININE
     Dosage: 2 MG, 1X/DAY
     Route: 048

REACTIONS (1)
  - Crohn^s disease [Unknown]
